FAERS Safety Report 16332356 (Version 2)
Quarter: 2019Q2

REPORT INFORMATION
  Report Type: Spontaneous
  Country: US (occurrence: US)
  Receive Date: 20190520
  Receipt Date: 20190619
  Transmission Date: 20190711
  Serious: No
  Sender: FDA-Public Use
  Company Number: US-PFIZER INC-2019207506

PATIENT

DRUGS (1)
  1. MARCAINE [Suspect]
     Active Substance: BUPIVACAINE HYDROCHLORIDE
     Indication: NERVE BLOCK
     Dosage: 2 ML, SINGLE (2ML, SPINAL, ONE DOSE)
     Route: 008
     Dates: start: 20190510, end: 20190510

REACTIONS (1)
  - Drug ineffective [Recovering/Resolving]

NARRATIVE: CASE EVENT DATE: 20190510
